FAERS Safety Report 9639199 (Version 1)
Quarter: 2013Q4

REPORT INFORMATION
  Report Type: Spontaneous
  Country: CA (occurrence: CA)
  Receive Date: 20131022
  Receipt Date: 20131022
  Transmission Date: 20140711
  Serious: Yes (Other)
  Sender: FDA-Public Use
  Company Number: CA-ROCHE-1290160

PATIENT
  Age: 60 Year
  Sex: Male

DRUGS (4)
  1. MYCOPHENOLATE MOFETIL [Suspect]
     Indication: PRODUCT USED FOR UNKNOWN INDICATION
     Route: 065
  2. PREDNISONE [Suspect]
     Indication: PRODUCT USED FOR UNKNOWN INDICATION
     Route: 065
  3. METHYLPREDNISOLON [Suspect]
     Indication: PRODUCT USED FOR UNKNOWN INDICATION
     Route: 042
  4. TACROLIMUS [Suspect]
     Indication: PRODUCT USED FOR UNKNOWN INDICATION
     Route: 065

REACTIONS (3)
  - Cytomegalovirus viraemia [Unknown]
  - Kidney transplant rejection [Unknown]
  - Pneumocystis jirovecii pneumonia [Unknown]
